FAERS Safety Report 18243914 (Version 1)
Quarter: 2020Q3

REPORT INFORMATION
  Report Type: Spontaneous
  Country: FR (occurrence: FR)
  Receive Date: 20200908
  Receipt Date: 20200908
  Transmission Date: 20201103
  Serious: Yes (Hospitalization)
  Sender: FDA-Public Use
  Company Number: NVSC2020FR242200

PATIENT
  Age: 72 Year
  Sex: Female

DRUGS (5)
  1. ENDOXAN [Suspect]
     Active Substance: CYCLOPHOSPHAMIDE
     Indication: B-CELL LYMPHOMA
     Dosage: 750 MG/M2, TOTAL
     Route: 041
     Dates: start: 20111130, end: 20111130
  2. MABTHERA [Suspect]
     Active Substance: RITUXIMAB
     Indication: B-CELL LYMPHOMA
     Dosage: 375 MG/M2, TOTAL
     Route: 041
     Dates: start: 20111129, end: 20111129
  3. PREDNISONE. [Suspect]
     Active Substance: PREDNISONE
     Indication: B-CELL LYMPHOMA
     Dosage: 100 MG, TOTAL
     Route: 041
     Dates: start: 20111130, end: 20111130
  4. DOXORUBICINE TEVA [Suspect]
     Active Substance: DOXORUBICIN
     Indication: B-CELL LYMPHOMA
     Dosage: 50 MG/M2, TOTAL
     Route: 041
     Dates: start: 20111130, end: 20111130
  5. VINCRISTINE TEVA [Suspect]
     Active Substance: VINCRISTINE
     Indication: B-CELL LYMPHOMA
     Dosage: 1.4 MG/M2, TOTAL
     Route: 041
     Dates: start: 20111130, end: 20111130

REACTIONS (2)
  - Neutropenia [Recovered/Resolved]
  - Transient ischaemic attack [Recovered/Resolved]

NARRATIVE: CASE EVENT DATE: 20111209
